FAERS Safety Report 12497350 (Version 1)
Quarter: 2016Q2

REPORT INFORMATION
  Report Type: Spontaneous
  Country: US (occurrence: US)
  Receive Date: 20160624
  Receipt Date: 20160624
  Transmission Date: 20160815
  Serious: Yes (Hospitalization)
  Sender: FDA-Public Use
  Company Number: US-MYLANLABS-2016M1026167

PATIENT

DRUGS (5)
  1. ARIPIPRAZOLE. [Concomitant]
     Active Substance: ARIPIPRAZOLE
     Route: 065
  2. ESCITALOPRAM [Concomitant]
     Active Substance: ESCITALOPRAM OXALATE
     Route: 065
  3. LITHIUM. [Suspect]
     Active Substance: LITHIUM
     Indication: BIPOLAR DISORDER
     Dosage: FOR 10 YEARS
     Route: 065
  4. KLONOPIN [Concomitant]
     Active Substance: CLONAZEPAM
     Route: 065
  5. DOXYCYCLINE. [Interacting]
     Active Substance: DOXYCYCLINE
     Indication: PNEUMONIA
     Route: 065

REACTIONS (3)
  - Drug interaction [Recovering/Resolving]
  - Nephrogenic diabetes insipidus [Unknown]
  - Toxicity to various agents [Recovering/Resolving]
